FAERS Safety Report 20532458 (Version 2)
Quarter: 2023Q1

REPORT INFORMATION
  Report Type: Spontaneous
  Country: US (occurrence: US)
  Receive Date: 20220301
  Receipt Date: 20230324
  Transmission Date: 20230418
  Serious: Yes (Disabling, Other)
  Sender: FDA-Public Use
  Company Number: US-AMERICAN REGENT INC-2022000426

PATIENT
  Age: 27 Year
  Sex: Female
  Weight: 107.94 kg

DRUGS (5)
  1. FERRIC CARBOXYMALTOSE [Suspect]
     Active Substance: FERRIC CARBOXYMALTOSE
     Indication: Iron deficiency anaemia
     Dosage: 750 MILLIGRAM DAILY SHORT OVER 30 MINUTES FOR 1 DAY IN NS 250ML
     Route: 042
     Dates: start: 20201218, end: 20201218
  2. FERRIC CARBOXYMALTOSE [Suspect]
     Active Substance: FERRIC CARBOXYMALTOSE
     Dosage: 750 MILLIGRAM DAILY SHORT OVER 30 MINUTES FOR 1 DAY IN NS 250ML
     Route: 042
     Dates: start: 20201228, end: 20201228
  3. DIPHENHYDRAMINE HYDROCHLORIDE [Concomitant]
     Active Substance: DIPHENHYDRAMINE HYDROCHLORIDE
     Indication: Product used for unknown indication
     Dosage: 50 MG INJECTION DAILY SHORT OVER 20 MINUTES FOR 1 DAY IN NS 100 ML
     Dates: start: 20201218, end: 20201218
  4. DIPHENHYDRAMINE HYDROCHLORIDE [Concomitant]
     Active Substance: DIPHENHYDRAMINE HYDROCHLORIDE
     Dosage: 50 MG INJECTION DAILY SHORT OVER 20 MINUTES FOR 1 DAY IN NS 100 ML
     Dates: start: 20201228, end: 20201228
  5. SOLU-CORTEF [Concomitant]
     Active Substance: HYDROCORTISONE SODIUM SUCCINATE
     Indication: Product used for unknown indication
     Dosage: 100 MG INJECTION DAILY PUSH OVER 2 MINUTES FOR 1 DAY
     Dates: start: 20201228, end: 20201228

REACTIONS (21)
  - Somnolence [Unknown]
  - Asthenia [Not Recovered/Not Resolved]
  - Myalgia [Not Recovered/Not Resolved]
  - Feeling abnormal [Not Recovered/Not Resolved]
  - Stress [Not Recovered/Not Resolved]
  - Anxiety [Not Recovered/Not Resolved]
  - Pain [Not Recovered/Not Resolved]
  - Hypophosphataemia [Recovered/Resolved]
  - Chest discomfort [Not Recovered/Not Resolved]
  - Arthralgia [Not Recovered/Not Resolved]
  - Dyspnoea [Not Recovered/Not Resolved]
  - Chest pain [Not Recovered/Not Resolved]
  - Tachycardia [Not Recovered/Not Resolved]
  - Palpitations [Not Recovered/Not Resolved]
  - Dizziness [Not Recovered/Not Resolved]
  - Nausea [Not Recovered/Not Resolved]
  - Vomiting [Not Recovered/Not Resolved]
  - Paraesthesia [Not Recovered/Not Resolved]
  - Anhedonia [Unknown]
  - Emotional distress [Unknown]
  - Product quality issue [Unknown]

NARRATIVE: CASE EVENT DATE: 20201228
